FAERS Safety Report 6276253-4 (Version None)
Quarter: 2009Q3

REPORT INFORMATION
  Report Type: 
  Country: None (occurrence: None)
  Receive Date: 20090722
  Receipt Date: 20090714
  Transmission Date: 20100115
  Serious: Yes (Hospitalization, Other)
  Sender: FDA-Public Use
  Company Number: GB-BAYER-200912619BNE

PATIENT
  Sex: Female

DRUGS (6)
  1. CIPROFLOXACIN [Suspect]
     Indication: ENDOCARDITIS BACTERIAL
     Dosage: AS USED: 1000 MG
     Route: 065
  2. DAPTOMYCIN [Interacting]
     Indication: ENDOCARDITIS BACTERIAL
  3. FLUCONAZOLE [Interacting]
     Indication: ENDOCARDITIS BACTERIAL
     Route: 065
  4. NEORAL [Interacting]
     Indication: APLASTIC ANAEMIA
  5. RIFAMPICIN [Interacting]
     Indication: ENDOCARDITIS BACTERIAL
  6. CYCLOSPORINE [Concomitant]
     Indication: DRUG USE FOR UNKNOWN INDICATION

REACTIONS (1)
  - NO ADVERSE EVENT [None]
